FAERS Safety Report 6216505-7 (Version None)
Quarter: 2009Q2

REPORT INFORMATION
  Report Type: 
  Country: None (occurrence: None)
  Receive Date: 20090605
  Receipt Date: 20090527
  Transmission Date: 20091009
  Serious: Yes (Other)
  Sender: FDA-Public Use
  Company Number: CA-MERCK-0903CAN00101

PATIENT
  Age: 50 Year
  Sex: Male

DRUGS (4)
  1. ISENTRESS [Suspect]
     Indication: HIV INFECTION
     Route: 048
     Dates: start: 20080925, end: 20090320
  2. DARUNAVIR [Concomitant]
     Indication: HIV INFECTION
     Route: 065
     Dates: start: 20080925, end: 20090320
  3. ETRAVIRINE [Concomitant]
     Indication: HIV INFECTION
     Route: 065
     Dates: start: 20080925, end: 20090320
  4. RITONAVIR [Concomitant]
     Indication: HIV INFECTION
     Route: 065
     Dates: start: 20080925, end: 20090320

REACTIONS (2)
  - HEPATIC FAILURE [None]
  - HEPATITIS C [None]
